FAERS Safety Report 8512200-X (Version None)
Quarter: 2012Q2

REPORT INFORMATION
  Report Type: 
  Country: None (occurrence: None)
  Receive Date: 20120405
  Receipt Date: 20090317
  Transmission Date: 20120825
  Serious: Yes (Other)
  Sender: FDA-Public Use
  Company Number: PHEH2008US09023

PATIENT
  Sex: Female

DRUGS (8)
  1. FOSAMAX [Concomitant]
  2. MAXZIDE [Concomitant]
  3. RECLAST [Suspect]
     Indication: OSTEOPOROSIS
     Dosage: UNK
     Dates: start: 20070901
  4. LOTREL [Concomitant]
  5. TOPROL-XL [Concomitant]
  6. ASPIRIN [Concomitant]
  7. BONIVA [Concomitant]
  8. PREVACID [Concomitant]

REACTIONS (3)
  - PAIN [None]
  - OSTEONECROSIS [None]
  - TOOTH DISORDER [None]
